FAERS Safety Report 9463824 (Version 3)
Quarter: 2014Q3

REPORT INFORMATION
  Report Type: Report from Study
  Country: FR (occurrence: FR)
  Receive Date: 20130819
  Receipt Date: 20140825
  Transmission Date: 20150326
  Serious: Yes (Hospitalization, Other)
  Sender: FDA-Public Use
  Company Number: FR-JNJFOC-20130807641

PATIENT
  Age: 76 Year
  Sex: Female

DRUGS (58)
  1. DOXORUBICIN [Suspect]
     Active Substance: DOXORUBICIN
     Indication: PLASMA CELL MYELOMA
     Route: 042
     Dates: start: 20130110, end: 20130612
  2. VINCRISTINE [Suspect]
     Active Substance: VINCRISTINE
     Indication: PLASMA CELL MYELOMA
     Route: 065
     Dates: start: 20130814, end: 20130904
  3. VINCRISTINE [Suspect]
     Active Substance: VINCRISTINE
     Indication: PLASMA CELL MYELOMA
     Dosage: TREATMENT LINE 3; CYCLE 1
     Route: 065
     Dates: start: 20130327, end: 20130522
  4. METHYLPREDNISOLONE [Suspect]
     Active Substance: METHYLPREDNISOLONE
     Indication: PLASMA CELL MYELOMA
     Dosage: TREATMENT LINE 2; CYCLE 2
     Route: 065
     Dates: start: 20130110, end: 20130206
  5. METHYLPREDNISOLONE [Suspect]
     Active Substance: METHYLPREDNISOLONE
     Indication: PLASMA CELL MYELOMA
     Dosage: TREATMENT LINE 3; CYCLE 3
     Route: 065
     Dates: start: 20130613, end: 20130703
  6. DOXORUBICIN [Suspect]
     Active Substance: DOXORUBICIN
     Indication: PLASMA CELL MYELOMA
     Route: 042
     Dates: start: 20130814, end: 20130904
  7. CARMUSTINE [Suspect]
     Active Substance: CARMUSTINE
     Indication: PLASMA CELL MYELOMA
     Route: 065
     Dates: start: 20130814, end: 20130904
  8. ENDOXAN [Suspect]
     Active Substance: CYCLOPHOSPHAMIDE
     Indication: PLASMA CELL MYELOMA
     Dosage: TREATMENT LINE 3; CYCLE 3
     Route: 065
     Dates: start: 20130613, end: 20130703
  9. ENDOXAN [Suspect]
     Active Substance: CYCLOPHOSPHAMIDE
     Indication: PLASMA CELL MYELOMA
     Route: 065
     Dates: start: 20130725, end: 20130813
  10. ENDOXAN [Suspect]
     Active Substance: CYCLOPHOSPHAMIDE
     Indication: PLASMA CELL MYELOMA
     Route: 065
     Dates: start: 20130207, end: 20130703
  11. DOXORUBICIN [Suspect]
     Active Substance: DOXORUBICIN
     Indication: PLASMA CELL MYELOMA
     Dosage: TREATMENT LINE 2; CYCLE 2
     Route: 042
     Dates: start: 20130110, end: 20130206
  12. DOXORUBICIN [Suspect]
     Active Substance: DOXORUBICIN
     Indication: PLASMA CELL MYELOMA
     Route: 042
     Dates: start: 20130704, end: 20130724
  13. VINCRISTINE [Suspect]
     Active Substance: VINCRISTINE
     Indication: PLASMA CELL MYELOMA
     Dosage: TREATMENT LINE 2; CYCLE 2
     Route: 065
     Dates: start: 20130110, end: 20130206
  14. VINCRISTINE [Suspect]
     Active Substance: VINCRISTINE
     Indication: PLASMA CELL MYELOMA
     Route: 065
     Dates: start: 20130110, end: 20130703
  15. VINCRISTINE [Suspect]
     Active Substance: VINCRISTINE
     Indication: PLASMA CELL MYELOMA
     Dosage: TREATMENT LINE 3; CYCLE 1
     Route: 065
     Dates: start: 20130613, end: 20130703
  16. CARMUSTINE [Suspect]
     Active Substance: CARMUSTINE
     Indication: PLASMA CELL MYELOMA
     Route: 065
     Dates: start: 20130110, end: 20130312
  17. METHYLPREDNISOLONE [Suspect]
     Active Substance: METHYLPREDNISOLONE
     Indication: PLASMA CELL MYELOMA
     Route: 065
     Dates: start: 20130905, end: 20130926
  18. ZOMETA [Concomitant]
     Active Substance: ZOLEDRONIC ACID
     Route: 065
     Dates: start: 20130523
  19. FRAGMINE [Concomitant]
     Active Substance: DALTEPARIN SODIUM
     Route: 065
     Dates: start: 201305
  20. DOXORUBICIN [Suspect]
     Active Substance: DOXORUBICIN
     Indication: PLASMA CELL MYELOMA
     Dosage: TREATMENT LINE 2; CYCLE 3
     Route: 042
     Dates: start: 20130523, end: 20130612
  21. VINCRISTINE [Suspect]
     Active Substance: VINCRISTINE
     Indication: PLASMA CELL MYELOMA
     Route: 065
     Dates: start: 20130704, end: 20130724
  22. METHYLPREDNISOLONE [Suspect]
     Active Substance: METHYLPREDNISOLONE
     Indication: PLASMA CELL MYELOMA
     Route: 065
     Dates: start: 20130814, end: 20130904
  23. METHYLPREDNISOLONE [Suspect]
     Active Substance: METHYLPREDNISOLONE
     Indication: PLASMA CELL MYELOMA
     Route: 065
     Dates: start: 20130110, end: 20130703
  24. FLAGYL [Concomitant]
     Active Substance: METRONIDAZOLE\METRONIDAZOLE HYDROCHLORIDE
     Route: 065
     Dates: start: 201304, end: 201304
  25. SKENAN [Concomitant]
     Active Substance: MORPHINE SULFATE
     Route: 065
     Dates: start: 201305, end: 201305
  26. NEORECORMON [Concomitant]
     Active Substance: ERYTHROPOIETIN
     Route: 065
     Dates: start: 201305, end: 201307
  27. DOXORUBICIN [Suspect]
     Active Substance: DOXORUBICIN
     Indication: PLASMA CELL MYELOMA
     Route: 042
     Dates: start: 20130927, end: 20131010
  28. VINCRISTINE [Suspect]
     Active Substance: VINCRISTINE
     Indication: PLASMA CELL MYELOMA
     Route: 065
     Dates: start: 20130905, end: 20130926
  29. VINCRISTINE [Suspect]
     Active Substance: VINCRISTINE
     Indication: PLASMA CELL MYELOMA
     Route: 065
     Dates: start: 20130725, end: 20130813
  30. ENDOXAN [Suspect]
     Active Substance: CYCLOPHOSPHAMIDE
     Indication: PLASMA CELL MYELOMA
     Dosage: TREATMENT LINE 2; CYCLE 2
     Route: 065
     Dates: start: 20130207, end: 20130227
  31. PENTACARINAT [Concomitant]
     Active Substance: PENTAMIDINE ISETHIONATE
     Route: 065
     Dates: start: 20121102
  32. NIVESTIM [Concomitant]
     Active Substance: FILGRASTIM
     Route: 065
     Dates: start: 20130118
  33. INEXIUM [Concomitant]
     Active Substance: ESOMEPRAZOLE
     Route: 065
     Dates: start: 201305
  34. VINCRISTINE [Suspect]
     Active Substance: VINCRISTINE
     Indication: PLASMA CELL MYELOMA
     Dosage: TREATMENT LINE 2; CYCLE 2
     Route: 065
     Dates: start: 20130207, end: 20130227
  35. VINCRISTINE [Suspect]
     Active Substance: VINCRISTINE
     Indication: PLASMA CELL MYELOMA
     Dosage: TREATMENT LINE 2; CYCLE 3
     Route: 065
     Dates: start: 20130228, end: 20130326
  36. CARMUSTINE [Suspect]
     Active Substance: CARMUSTINE
     Indication: PLASMA CELL MYELOMA
     Dosage: TREATMENT LINE 2; CYCLE 2
     Route: 065
     Dates: start: 20130110, end: 20130206
  37. CARMUSTINE [Suspect]
     Active Substance: CARMUSTINE
     Indication: PLASMA CELL MYELOMA
     Dosage: TREATMENT LINE 3; CYCLE 2
     Route: 065
     Dates: start: 20130523, end: 20130612
  38. CARMUSTINE [Suspect]
     Active Substance: CARMUSTINE
     Indication: PLASMA CELL MYELOMA
     Route: 065
     Dates: start: 20130704, end: 20130724
  39. CARMUSTINE [Suspect]
     Active Substance: CARMUSTINE
     Indication: PLASMA CELL MYELOMA
     Dosage: TREATMENT LINE 2; CYCLE 3
     Route: 065
     Dates: start: 20130228, end: 20130326
  40. METHYLPREDNISOLONE [Suspect]
     Active Substance: METHYLPREDNISOLONE
     Indication: PLASMA CELL MYELOMA
     Dosage: TREATMENT LINE 3; CYCLE 1
     Route: 065
     Dates: start: 20130327, end: 20130522
  41. ENDOXAN [Suspect]
     Active Substance: CYCLOPHOSPHAMIDE
     Indication: PLASMA CELL MYELOMA
     Route: 065
     Dates: start: 20130905, end: 20130926
  42. VELCADE [Suspect]
     Active Substance: BORTEZOMIB
     Indication: PLASMA CELL MYELOMA
     Route: 065
     Dates: start: 20121004, end: 20130109
  43. CARMUSTINE [Suspect]
     Active Substance: CARMUSTINE
     Indication: PLASMA CELL MYELOMA
     Route: 065
     Dates: start: 20130927, end: 20131018
  44. METHYLPREDNISOLONE [Suspect]
     Active Substance: METHYLPREDNISOLONE
     Indication: PLASMA CELL MYELOMA
     Dosage: TREATMENT LINE 2; CYCLE 2
     Route: 065
     Dates: start: 20130207, end: 20130227
  45. METHYLPREDNISOLONE [Suspect]
     Active Substance: METHYLPREDNISOLONE
     Indication: PLASMA CELL MYELOMA
     Route: 065
     Dates: start: 20130704, end: 20130724
  46. METHYLPREDNISOLONE [Suspect]
     Active Substance: METHYLPREDNISOLONE
     Indication: PLASMA CELL MYELOMA
     Dosage: TREATMENT LINE 2; CYCLE 3
     Route: 065
     Dates: start: 20130228, end: 20130326
  47. MORPHINE [Concomitant]
     Active Substance: MORPHINE
     Route: 065
     Dates: start: 20130320, end: 201305
  48. ROCEPHIN [Concomitant]
     Active Substance: CEFTRIAXONE SODIUM
     Route: 065
     Dates: start: 201304, end: 201305
  49. DOXORUBICIN [Suspect]
     Active Substance: DOXORUBICIN
     Indication: PLASMA CELL MYELOMA
     Dosage: TREATMENT LINE 2; CYCLE 3
     Route: 042
     Dates: start: 20130228, end: 20130326
  50. VINCRISTINE [Suspect]
     Active Substance: VINCRISTINE
     Indication: PLASMA CELL MYELOMA
     Route: 065
     Dates: start: 20130927, end: 20131018
  51. VINCRISTINE [Suspect]
     Active Substance: VINCRISTINE
     Indication: PLASMA CELL MYELOMA
     Dosage: TREATMENT LINE 3; CYCLE 2
     Route: 065
     Dates: start: 20130523, end: 20130612
  52. METHYLPREDNISOLONE [Suspect]
     Active Substance: METHYLPREDNISOLONE
     Indication: PLASMA CELL MYELOMA
     Route: 065
     Dates: start: 20130927, end: 20131018
  53. METHYLPREDNISOLONE [Suspect]
     Active Substance: METHYLPREDNISOLONE
     Indication: PLASMA CELL MYELOMA
     Dosage: TREATMENT LINE 3; CYCLE 2
     Route: 065
     Dates: start: 20130523, end: 20130612
  54. ENDOXAN [Suspect]
     Active Substance: CYCLOPHOSPHAMIDE
     Indication: PLASMA CELL MYELOMA
     Dosage: TREATMENT LINE 3; CYCLE 1
     Route: 065
     Dates: start: 20130327, end: 20130522
  55. ZELITREX [Concomitant]
     Active Substance: VALACYCLOVIR HYDROCHLORIDE
     Route: 065
     Dates: start: 20121004
  56. VANCOMYCINE [Concomitant]
     Active Substance: VANCOMYCIN
     Route: 065
     Dates: start: 201303, end: 201304
  57. TRANSIPEG [Concomitant]
     Active Substance: POLYETHYLENE GLYCOL 3350
     Route: 065
     Dates: start: 201305
  58. IMOVANE [Concomitant]
     Active Substance: ZOPICLONE
     Route: 065
     Dates: start: 201305

REACTIONS (5)
  - Deep vein thrombosis [Recovering/Resolving]
  - Clostridium difficile colitis [Recovered/Resolved]
  - Urinary retention [Unknown]
  - Bone pain [Recovered/Resolved]
  - Septic arthritis streptococcal [Recovered/Resolved]

NARRATIVE: CASE EVENT DATE: 20130318
